FAERS Safety Report 24089900 (Version 1)
Quarter: 2024Q3

REPORT INFORMATION
  Report Type: Spontaneous
  Country: CN (occurrence: CN)
  Receive Date: 20240715
  Receipt Date: 20240715
  Transmission Date: 20241017
  Serious: Yes (Hospitalization)
  Sender: STRIDES
  Company Number: CN-STRIDES ARCOLAB LIMITED-2024SP008260

PATIENT
  Age: 53 Year
  Sex: Female

DRUGS (11)
  1. ETOPOSIDE [Suspect]
     Active Substance: ETOPOSIDE
     Indication: Immunosuppressant drug therapy
     Dosage: 20 MILLIGRAM/KILOGRAM, ON DAY -5 TO -4
     Route: 065
  2. ETOPOSIDE [Suspect]
     Active Substance: ETOPOSIDE
     Indication: Allogenic stem cell transplantation
  3. CYCLOSPORINE [Suspect]
     Active Substance: CYCLOSPORINE
     Indication: Immunosuppressant drug therapy
     Dosage: 70 MILLIGRAM, QD, FROM DAY +4
     Route: 065
  4. CYCLOSPORINE [Suspect]
     Active Substance: CYCLOSPORINE
     Indication: Allogenic stem cell transplantation
     Dosage: UNK DECREASED
     Route: 065
  5. CYCLOPHOSPHAMIDE [Suspect]
     Active Substance: CYCLOPHOSPHAMIDE
     Indication: Immunosuppressant drug therapy
     Dosage: 100 MILLIGRAM/KILOGRAM, ON DAYS -5 TO -4
     Route: 065
  6. CYCLOPHOSPHAMIDE [Suspect]
     Active Substance: CYCLOPHOSPHAMIDE
     Indication: Allogenic stem cell transplantation
     Dosage: 50 MILLIGRAM/KILOGRAM, ON DAY +4
     Route: 065
  7. LAPINE T-LYMPHOCYTE IMMUNE GLOBULIN [Suspect]
     Active Substance: LAPINE T-LYMPHOCYTE IMMUNE GLOBULIN
     Indication: Immunosuppressant drug therapy
     Dosage: 5.2 MILLIGRAM/KILOGRAM, ON DAYS -2 TO -1
     Route: 065
  8. LAPINE T-LYMPHOCYTE IMMUNE GLOBULIN [Suspect]
     Active Substance: LAPINE T-LYMPHOCYTE IMMUNE GLOBULIN
     Indication: Allogenic stem cell transplantation
  9. MYCOPHENOLATE SODIUM [Suspect]
     Active Substance: MYCOPHENOLATE SODIUM
     Indication: Prophylaxis against graft versus host disease
     Dosage: 720 MILLIGRAM, QD, ENTERIC-COATED (ON DAYS +4 TO +34)
     Route: 065
  10. VALACYCLOVIR HYDROCHLORIDE [Concomitant]
     Active Substance: VALACYCLOVIR HYDROCHLORIDE
     Indication: Antiviral prophylaxis
     Dosage: 1.2 GRAM, QD
     Route: 048
  11. POSACONAZOLE [Concomitant]
     Active Substance: POSACONAZOLE
     Indication: Antifungal prophylaxis
     Dosage: 0.3 GRAM, QD
     Route: 065

REACTIONS (4)
  - Ischaemic stroke [Recovered/Resolved]
  - Encephalitis autoimmune [Recovered/Resolved]
  - Cytomegalovirus infection [Recovered/Resolved]
  - Off label use [Unknown]
